FAERS Safety Report 12452580 (Version 2)
Quarter: 2021Q3

REPORT INFORMATION
  Report Type: Spontaneous
  Country: FR (occurrence: FR)
  Receive Date: 20160609
  Receipt Date: 20210915
  Transmission Date: 20211014
  Serious: Yes (Disabling, Congenital Anomaly, Other)
  Sender: FDA-Public Use
  Company Number: FR-ABBVIE-16P-056-1647222-00

PATIENT
  Sex: Male

DRUGS (2)
  1. AVLOCARDYL [Concomitant]
     Active Substance: PROPRANOLOL HYDROCHLORIDE
     Indication: PRODUCT USED FOR UNKNOWN INDICATION
  2. DEPAKINE CHRONO [Suspect]
     Active Substance: VALPROATE SODIUM
     Indication: MATERNAL EXPOSURE TIMING UNSPECIFIED
     Route: 064

REACTIONS (56)
  - Developmental delay [Unknown]
  - Scoliosis [Unknown]
  - Aphasia [Unknown]
  - Myopia [Unknown]
  - Dyspnoea [Unknown]
  - Arthralgia [Unknown]
  - Gastrooesophageal reflux disease [Unknown]
  - Dysmorphism [Unknown]
  - Pelvic deformity [Unknown]
  - Dysgraphia [Unknown]
  - Dyspraxia [Unknown]
  - Educational problem [Unknown]
  - Communication disorder [Unknown]
  - Disinhibition [Unknown]
  - Depressed mood [Unknown]
  - Pasteurella infection [Unknown]
  - Mental impairment [Unknown]
  - Memory impairment [Unknown]
  - Autism spectrum disorder [Unknown]
  - Nasopharyngitis [Unknown]
  - Rhinorrhoea [Unknown]
  - Cough [Unknown]
  - Knee deformity [Unknown]
  - Cognitive disorder [Unknown]
  - Asthma [Unknown]
  - Oesophagitis [Unknown]
  - Chest pain [Unknown]
  - Foetal anticonvulsant syndrome [Unknown]
  - Speech disorder developmental [Unknown]
  - Dyslexia [Unknown]
  - Hypertonia [Unknown]
  - Foot deformity [Unknown]
  - Disturbance in attention [Unknown]
  - Angioedema [Unknown]
  - Psychomotor skills impaired [Unknown]
  - Personal relationship issue [Unknown]
  - Learning disorder [Unknown]
  - Reading disorder [Unknown]
  - Balance disorder [Unknown]
  - Ligament laxity [Unknown]
  - Emotional disorder [Unknown]
  - Illusion [Unknown]
  - Binocular eye movement disorder [Unknown]
  - Respiratory disorder [Unknown]
  - Foetal exposure during pregnancy [Unknown]
  - Foetal growth restriction [Unknown]
  - Social avoidant behaviour [Unknown]
  - Joint laxity [Unknown]
  - Hyperreflexia [Unknown]
  - Otitis media acute [Unknown]
  - Rhinitis [Unknown]
  - Back pain [Unknown]
  - Neck pain [Unknown]
  - Fatigue [Unknown]
  - Mood swings [Unknown]
  - Selective eating disorder [Unknown]

NARRATIVE: CASE EVENT DATE: 19991030
